FAERS Safety Report 19651138 (Version 4)
Quarter: 2021Q3

REPORT INFORMATION
  Report Type: Spontaneous
  Country: DE (occurrence: DE)
  Receive Date: 20210803
  Receipt Date: 20210930
  Transmission Date: 20211014
  Serious: Yes (Hospitalization, Other)
  Sender: FDA-Public Use
  Company Number: DE-VIIV HEALTHCARE LIMITED-DE2021EME161779

PATIENT
  Age: 31 Year
  Sex: Female
  Weight: 62 kg

DRUGS (4)
  1. VOCABRIA [Suspect]
     Active Substance: CABOTEGRAVIR SODIUM
     Indication: HIV INFECTION
     Dosage: UNK, EVERY 8 WEEKS
     Route: 030
     Dates: start: 20210628
  2. TILIDIN [Concomitant]
     Active Substance: NALOXONE HYDROCHLORIDE\TILIDINE HYDROCHLORIDE
     Indication: BACK PAIN
     Dosage: UNK, 100MG/8 MG, AS NEEDED
     Dates: start: 20201221
  3. REKAMBYS (CODE ONLY IF GIVEN WITH CABOTEGRAVIR) [Suspect]
     Active Substance: RILPIVIRINE
     Indication: HIV INFECTION
     Dosage: UNK, EVERY 8 WEEKS
     Route: 030
     Dates: start: 20210628, end: 20210726
  4. IBUPROFEN. [Concomitant]
     Active Substance: IBUPROFEN
     Indication: BACK PAIN
     Dosage: 600 MG,AS NEEDED

REACTIONS (19)
  - Rash pruritic [Recovered/Resolved]
  - Dyspnoea [Recovered/Resolved]
  - Angioedema [Recovered/Resolved]
  - Paraesthesia [Recovered/Resolved]
  - Pharyngeal paraesthesia [Recovered/Resolved]
  - Dysgeusia [Recovered/Resolved]
  - Anaphylactic reaction [Unknown]
  - Cardiovascular symptom [Recovered/Resolved]
  - Tachypnoea [Recovered/Resolved]
  - Cold sweat [Recovering/Resolving]
  - Erythema [Recovered/Resolved]
  - Paraesthesia oral [Recovered/Resolved]
  - Pallor [Unknown]
  - Anaphylactic shock [Recovered/Resolved]
  - Tachycardia [Recovered/Resolved]
  - Blood pressure decreased [Recovered/Resolved]
  - Respiratory distress [Unknown]
  - Hypotension [Recovered/Resolved]
  - Pharyngeal swelling [Recovering/Resolving]

NARRATIVE: CASE EVENT DATE: 20210726
